FAERS Safety Report 14452807 (Version 2)
Quarter: 2019Q3

REPORT INFORMATION
  Report Type: Report from Study
  Country: US (occurrence: US)
  Receive Date: 20180129
  Receipt Date: 20190806
  Transmission Date: 20191004
  Serious: Yes (Death, Other)
  Sender: FDA-Public Use
  Company Number: US-REGENERON PHARMACEUTICALS, INC.-2018-11772

PATIENT

DRUGS (6)
  1. EYLEA [Suspect]
     Active Substance: AFLIBERCEPT
     Indication: RETINAL VEIN OCCLUSION
     Dosage: RIGHT EYE (OD)
     Dates: start: 20170327, end: 20170919
  2. EYLEA [Suspect]
     Active Substance: AFLIBERCEPT
     Indication: RETINAL VEIN OCCLUSION
     Dosage: RIGHT EYE (OD)
     Dates: start: 20170426, end: 20170426
  3. EYLEA [Suspect]
     Active Substance: AFLIBERCEPT
     Dosage: RIGHT EYE (OD)
     Dates: start: 20170705, end: 20170705
  4. EYLEA [Suspect]
     Active Substance: AFLIBERCEPT
     Dosage: RIGHT EYE (OD)
     Dates: start: 20170919, end: 20170919
  5. EYLEA [Suspect]
     Active Substance: AFLIBERCEPT
     Dosage: RIGHT EYE (OD)
     Dates: start: 20170531, end: 20170531
  6. EYLEA [Suspect]
     Active Substance: AFLIBERCEPT
     Dosage: RIGHT EYE (OD)
     Dates: start: 20170815, end: 20170815

REACTIONS (1)
  - Death [Fatal]
